FAERS Safety Report 19651858 (Version 1)
Quarter: 2021Q3

REPORT INFORMATION
  Report Type: Spontaneous
  Country: US (occurrence: US)
  Receive Date: 20210803
  Receipt Date: 20210803
  Transmission Date: 20211014
  Serious: Yes (Other)
  Sender: FDA-Public Use
  Company Number: US-UCBSA-2021035628

PATIENT
  Sex: Male

DRUGS (4)
  1. PRIMIDONE. [Suspect]
     Active Substance: PRIMIDONE
     Indication: DYSKINESIA
     Dosage: 100 MILLIGRAM, 3X/DAY (TID)
  2. LAMOTRIGINE. [Suspect]
     Active Substance: LAMOTRIGINE
     Indication: LENNOX-GASTAUT SYNDROME
     Dosage: 150 MILLIGRAM, 3X/DAY (TID)
  3. LEVETIRACETAM. [Suspect]
     Active Substance: LEVETIRACETAM
     Indication: LENNOX-GASTAUT SYNDROME
     Dosage: 1000 MILLIGRAM, 3X/DAY (TID)
  4. CLOBAZAM. [Suspect]
     Active Substance: CLOBAZAM
     Indication: LENNOX-GASTAUT SYNDROME
     Dosage: UNK

REACTIONS (6)
  - Generalised tonic-clonic seizure [Recovering/Resolving]
  - Product use issue [Unknown]
  - Tonic convulsion [Recovering/Resolving]
  - Petit mal epilepsy [Recovering/Resolving]
  - Multiple-drug resistance [Unknown]
  - Atonic seizures [Recovering/Resolving]
